FAERS Safety Report 8935299 (Version 1)
Quarter: 2012Q4

REPORT INFORMATION
  Report Type: 
  Country: BR (occurrence: BR)
  Receive Date: 20121129
  Receipt Date: 20121129
  Transmission Date: 20130627
  Serious: Yes (Other)
  Sender: FDA-Public Use
  Company Number: BR-GLAXOSMITHKLINE-A1003402A

PATIENT
  Age: 51 Year
  Sex: Male
  Weight: 68 kg

DRUGS (1)
  1. COMBODART [Suspect]
     Indication: BENIGN PROSTATIC HYPERPLASIA
     Dosage: 1CAP Per day
     Route: 065
     Dates: start: 20121105

REACTIONS (1)
  - Diarrhoea haemorrhagic [Not Recovered/Not Resolved]
